FAERS Safety Report 6113070-X (Version None)
Quarter: 2009Q1

REPORT INFORMATION
  Report Type: 
  Country: None (occurrence: None)
  Receive Date: 20090312
  Receipt Date: 20090226
  Transmission Date: 20090719
  Serious: Yes (Death)
  Sender: FDA-Public Use
  Company Number: US-WATSON-2009-01424

PATIENT
  Sex: Female

DRUGS (1)
  1. QUININE SULFATE (WATSON LABORATORIES) [Suspect]
     Indication: MUSCLE SPASMS
     Dosage: PRN AS DIRECTED BY PHYSICIAN
     Route: 048
     Dates: start: 20061222, end: 20070310

REACTIONS (4)
  - ANAEMIA [None]
  - RENAL FAILURE [None]
  - THROMBOCYTOPENIC PURPURA [None]
  - UNEVALUABLE EVENT [None]
